FAERS Safety Report 5498949-4 (Version None)
Quarter: 2007Q4

REPORT INFORMATION
  Report Type: 
  Country: None (occurrence: None)
  Receive Date: 20071026
  Receipt Date: 20070702
  Transmission Date: 20080405
  Serious: No
  Sender: FDA-Public Use
  Company Number: A0650440A

PATIENT
  Age: 76 Year
  Sex: Female

DRUGS (13)
  1. ADVAIR DISKUS 100/50 [Suspect]
     Indication: CHRONIC OBSTRUCTIVE PULMONARY DISEASE
     Route: 055
     Dates: start: 20020101
  2. METOPROLOL [Suspect]
     Indication: ATRIAL FIBRILLATION
     Dosage: 25MG PER DAY
     Route: 048
     Dates: start: 20070301
  3. SPIRIVA [Concomitant]
  4. COMBIVENT [Concomitant]
  5. OXYGEN [Concomitant]
  6. CRESTOR [Concomitant]
  7. COZAAR [Concomitant]
  8. SYNTHROID [Concomitant]
  9. SOTALOL HYDROCHLORIDE [Concomitant]
  10. COUMADIN [Concomitant]
  11. AMBIEN [Concomitant]
  12. FOSAMAX [Concomitant]
  13. ASPIRIN [Concomitant]

REACTIONS (2)
  - DYSPNOEA [None]
  - PHARMACEUTICAL PRODUCT COMPLAINT [None]
